FAERS Safety Report 23040675 (Version 6)
Quarter: 2024Q2

REPORT INFORMATION
  Report Type: Report from Study
  Country: CA (occurrence: CA)
  Receive Date: 20231006
  Receipt Date: 20240506
  Transmission Date: 20240716
  Serious: Yes (Other)
  Sender: FDA-Public Use
  Company Number: CA-KOREA IPSEN Pharma-2020-19100

PATIENT
  Age: 68 Year
  Sex: Male

DRUGS (9)
  1. LANREOTIDE ACETATE [Suspect]
     Active Substance: LANREOTIDE ACETATE
     Indication: Gastroenteropancreatic neuroendocrine tumour disease
     Dosage: VIA DEEP SUBCUTANEOUS ROUTE
     Route: 058
     Dates: start: 20191204
  2. LANREOTIDE ACETATE [Suspect]
     Active Substance: LANREOTIDE ACETATE
     Dosage: VIA DEEP SUBCUTANEOUS ROUTE
     Route: 058
  3. XERMELO [Concomitant]
     Active Substance: TELOTRISTAT ETHYL
     Indication: Gastroenteropancreatic neuroendocrine tumour disease
  4. TELMISARTAN [Concomitant]
     Active Substance: TELMISARTAN
     Indication: Hypertension
     Dosage: 20 MG 1 IN 1 DAY
     Route: 048
  5. TELMISARTAN [Concomitant]
     Active Substance: TELMISARTAN
     Dosage: 40 MG, DAILY
     Route: 048
  6. CRESTOR [Concomitant]
     Active Substance: ROSUVASTATIN CALCIUM
     Indication: Blood cholesterol increased
     Dosage: QHS - EVERY NIGHT AT BEDTIME
     Route: 048
  7. CRESTOR [Concomitant]
     Active Substance: ROSUVASTATIN CALCIUM
     Dosage: 20 MG DAILY
  8. CANDESARTAN [Concomitant]
     Active Substance: CANDESARTAN
  9. LOMOTIL [Concomitant]
     Active Substance: ATROPINE SULFATE\DIPHENOXYLATE HYDROCHLORIDE

REACTIONS (5)
  - Bradycardia [Not Recovered/Not Resolved]
  - Injection site pain [Recovered/Resolved]
  - SARS-CoV-2 test positive [Unknown]
  - Hypertension [Not Recovered/Not Resolved]
  - Off label use [Unknown]

NARRATIVE: CASE EVENT DATE: 20200908
